FAERS Safety Report 4821643-7 (Version None)
Quarter: 2005Q4

REPORT INFORMATION
  Report Type: 
  Country: None (occurrence: None)
  Receive Date: 20051103
  Receipt Date: 20051103
  Transmission Date: 20060501
  Serious: Yes (Hospitalization)
  Sender: FDA-Public Use
  Company Number: None

PATIENT

DRUGS (6)
  1. RITUXAN [Suspect]
     Indication: NON-HODGKIN'S LYMPHOMA REFRACTORY
     Dosage: RITUXAN 716 MG IV Q 21D
     Route: 042
     Dates: start: 20050802
  2. GALLIUM NITRATE  GENTA, INC. [Suspect]
     Indication: NON-HODGKIN'S LYMPHOMA REFRACTORY
     Dosage: GALLIUM NITRATE IV X7 D
     Route: 042
     Dates: start: 20050802, end: 20050809
  3. DECADRON [Concomitant]
  4. NIFEREX [Concomitant]
  5. BACTRIM DS [Concomitant]
  6. AMBIEN [Concomitant]

REACTIONS (19)
  - ADRENAL INSUFFICIENCY [None]
  - ASTHENIA [None]
  - ATRIAL FIBRILLATION [None]
  - BLOOD CULTURE POSITIVE [None]
  - BODY TEMPERATURE INCREASED [None]
  - DYSPNOEA [None]
  - FALL [None]
  - FATIGUE [None]
  - HYPOTENSION [None]
  - LOSS OF CONSCIOUSNESS [None]
  - MALAISE [None]
  - OXYGEN SATURATION DECREASED [None]
  - PNEUMOCYSTIS JIROVECI PNEUMONIA [None]
  - PNEUMONIA ASPIRATION [None]
  - PULMONARY EMBOLISM [None]
  - RESPIRATORY FAILURE [None]
  - RESPIRATORY RATE INCREASED [None]
  - STENOTROPHOMONAS INFECTION [None]
  - TROPONIN INCREASED [None]
